FAERS Safety Report 9247963 (Version 1)
Quarter: 2013Q2

REPORT INFORMATION
  Report Type: Spontaneous
  Country: US (occurrence: US)
  Receive Date: 20130423
  Receipt Date: 20130423
  Transmission Date: 20140414
  Serious: No
  Sender: FDA-Public Use
  Company Number: US-MYLANLABS-2013S1002359

PATIENT
  Age: 66 Year
  Sex: Male
  Weight: 106.6 kg

DRUGS (4)
  1. IPRATROPIUM BROMIDE AND ALBUTEROL SULFATE INHALATION SOLUTION [Suspect]
     Indication: PNEUMOCONIOSIS
     Route: 055
     Dates: start: 20130128
  2. ATROVENT [Concomitant]
     Indication: PNEUMOCONIOSIS
     Route: 055
  3. ADVAIR [Concomitant]
     Indication: PNEUMOCONIOSIS
     Route: 055
  4. LEVOTHYROXINE [Concomitant]
     Indication: THYROID DISORDER
     Route: 048

REACTIONS (2)
  - Drug effect decreased [Not Recovered/Not Resolved]
  - Dyspnoea [Not Recovered/Not Resolved]
